FAERS Safety Report 5945785-8 (Version None)
Quarter: 2008Q4

REPORT INFORMATION
  Report Type: 
  Country: None (occurrence: None)
  Receive Date: 20081106
  Receipt Date: 20081023
  Transmission Date: 20090506
  Serious: Yes (Hospitalization)
  Sender: FDA-Public Use
  Company Number: 231819J08USA

PATIENT
  Age: 56 Year
  Sex: Female

DRUGS (9)
  1. REBIF [Suspect]
     Indication: MULTIPLE SCLEROSIS
     Dosage: 44 MCG, 3 IN 1 WEEKS, SUBCUTANEOUS
     Route: 058
     Dates: start: 20020101, end: 20050401
  2. REBIF [Suspect]
     Indication: MULTIPLE SCLEROSIS
     Dosage: 44 MCG, 3 IN 1 WEEKS, SUBCUTANEOUS
     Route: 058
     Dates: start: 20051114, end: 20060201
  3. REBIF [Suspect]
     Indication: MULTIPLE SCLEROSIS
     Dosage: 44 MCG, 3 IN 1 WEEKS, SUBCUTANEOUS
     Route: 058
     Dates: start: 20060201, end: 20080212
  4. REBIF [Suspect]
     Indication: MULTIPLE SCLEROSIS
     Dosage: 44 MCG, 3 IN 1 WEEKS, SUBCUTANEOUS
     Route: 058
     Dates: start: 20080201
  5. FOSAMAX [Concomitant]
  6. PROPRANOLOL (PROPRANOLOL /00030001/) [Concomitant]
  7. HYDROCHLOROTHIAZIDE [Concomitant]
  8. OXYBUTYNIN (OXYBUTYNIN /00538901/) [Concomitant]
  9. PROZAC [Concomitant]

REACTIONS (2)
  - BREAST CANCER STAGE III [None]
  - POST PROCEDURAL COMPLICATION [None]
